FAERS Safety Report 8089326-0 (Version None)
Quarter: 2012Q1

REPORT INFORMATION
  Report Type: 
  Country: None (occurrence: None)
  Receive Date: 20120128
  Receipt Date: 20110628
  Transmission Date: 20120608
  Serious: Yes (Hospitalization)
  Sender: FDA-Public Use
  Company Number: US-ABBOTT-11P-163-0835663-00

PATIENT
  Sex: Male
  Weight: 93.524 kg

DRUGS (7)
  1. TYLENOL-500 [Concomitant]
     Indication: RHEUMATOID ARTHRITIS
  2. METHOTREXATE [Concomitant]
     Indication: RHEUMATOID ARTHRITIS
  3. FLOMAX [Concomitant]
     Indication: PROSTATIC DISORDER
  4. FINASTERIDE [Concomitant]
     Indication: PROSTATIC DISORDER
  5. ENALAPRIL [Concomitant]
     Indication: HYPERTENSION
  6. HUMIRA [Suspect]
     Indication: RHEUMATOID ARTHRITIS
     Dates: start: 20110101, end: 20110523
  7. LEUCOVORIN CALCIUM [Concomitant]
     Indication: RHEUMATOID ARTHRITIS

REACTIONS (1)
  - THROMBOSIS [None]
